FAERS Safety Report 4627060-7 (Version None)
Quarter: 2005Q1

REPORT INFORMATION
  Report Type: 
  Country: None (occurrence: None)
  Receive Date: 20050331
  Receipt Date: 20050315
  Transmission Date: 20050727
  Serious: Yes (Life-Threatening, Hospitalization)
  Sender: FDA-Public Use
  Company Number: 200510143BCA

PATIENT
  Age: 63 Year
  Sex: Male

DRUGS (10)
  1. CIPROFLOXACIN [Suspect]
     Indication: INFECTION
     Dosage: 1000 MG, TOTAL DAILY, ORAL
     Route: 048
     Dates: start: 20041207, end: 20041208
  2. CIPROFLOXACIN [Suspect]
     Indication: POSTOPERATIVE INFECTION
     Dosage: 1000 MG, TOTAL DAILY, ORAL
     Route: 048
     Dates: start: 20041207, end: 20041208
  3. CIPROFLOXACIN [Suspect]
     Indication: TRIPLE VESSEL BYPASS GRAFT
     Dosage: 1000 MG, TOTAL DAILY, ORAL
     Route: 048
     Dates: start: 20041207, end: 20041208
  4. AVODART [Concomitant]
  5. MONOPRIL [Concomitant]
  6. PLAVIX [Concomitant]
  7. METOPROLOL TARTRATE [Concomitant]
  8. CRESTOR [Concomitant]
  9. PANTALOC [Concomitant]
  10. PROSCAR [Concomitant]

REACTIONS (2)
  - ANURIA [None]
  - BODY TEMPERATURE FLUCTUATION [None]
